FAERS Safety Report 23893788 (Version 1)
Quarter: 2024Q2

REPORT INFORMATION
  Report Type: Spontaneous
  Country: US (occurrence: None)
  Receive Date: 20240524
  Receipt Date: 20240524
  Transmission Date: 20240716
  Serious: No
  Sender: FDA-Public Use
  Company Number: US-ROCHE-3474135

PATIENT
  Sex: Female

DRUGS (2)
  1. ACTEMRA [Suspect]
     Active Substance: TOCILIZUMAB
     Indication: Rheumatoid arthritis
     Dosage: SELF-INJECTED INTO HER LEGS, THIGHS
     Route: 058
     Dates: start: 20231105
  2. ACTEMRA [Suspect]
     Active Substance: TOCILIZUMAB

REACTIONS (8)
  - Pruritus [Unknown]
  - Rash [Recovered/Resolved]
  - Amnesia [Unknown]
  - Confusional state [Unknown]
  - Injection site reaction [Unknown]
  - Rash macular [Recovered/Resolved]
  - Therapeutic response shortened [Unknown]
  - Pain [Unknown]

NARRATIVE: CASE EVENT DATE: 20231202
